FAERS Safety Report 23585009 (Version 2)
Quarter: 2024Q2

REPORT INFORMATION
  Report Type: Report from Study
  Country: US (occurrence: US)
  Receive Date: 20240301
  Receipt Date: 20240419
  Transmission Date: 20240716
  Serious: Yes (Hospitalization)
  Sender: FDA-Public Use
  Company Number: US-ABBVIE-5657313

PATIENT
  Age: 29 Year
  Sex: Female

DRUGS (1)
  1. HUMIRA [Suspect]
     Active Substance: ADALIMUMAB
     Indication: Crohn^s disease
     Dosage: FORM STRENGTH 40 MILLIGRAMS?CITRATE FREE
     Route: 058
     Dates: start: 20231211

REACTIONS (4)
  - Intestinal obstruction [Recovering/Resolving]
  - Therapeutic product effect delayed [Unknown]
  - Menstruation delayed [Unknown]
  - Night sweats [Unknown]

NARRATIVE: CASE EVENT DATE: 20240205
